FAERS Safety Report 23332260 (Version 1)
Quarter: 2023Q4

REPORT INFORMATION
  Report Type: Spontaneous
  Country: CN (occurrence: None)
  Receive Date: 20231222
  Receipt Date: 20231222
  Transmission Date: 20240110
  Serious: Yes (Disabling)
  Sender: FDA-Public Use
  Company Number: 2023A286309

PATIENT
  Age: 17624 Day
  Sex: Male
  Weight: 76.5 kg

DRUGS (10)
  1. ROSUVASTATIN CALCIUM [Suspect]
     Active Substance: ROSUVASTATIN CALCIUM
     Indication: Acute myocardial infarction
     Route: 048
     Dates: start: 20231109, end: 20231108
  2. TICAGRELOR [Suspect]
     Active Substance: TICAGRELOR
     Indication: Acute myocardial infarction
     Route: 048
     Dates: start: 20231105, end: 20231116
  3. EZETIMIBE [Suspect]
     Active Substance: EZETIMIBE
     Indication: Acute myocardial infarction
     Route: 048
     Dates: start: 20231108, end: 20231116
  4. PANTOPRAZOLE SODIUM [Suspect]
     Active Substance: PANTOPRAZOLE SODIUM
     Indication: Acute myocardial infarction
     Route: 048
     Dates: start: 20231106, end: 20231116
  5. ATORVASTATIN CALCIUM [Suspect]
     Active Substance: ATORVASTATIN CALCIUM
     Indication: Acute myocardial infarction
     Route: 048
     Dates: start: 20231109, end: 20231111
  6. SPIRONOLACTONE [Suspect]
     Active Substance: SPIRONOLACTONE
     Indication: Acute myocardial infarction
     Route: 048
     Dates: start: 20231109, end: 20231116
  7. HEPARIN CALCIUM [Concomitant]
     Active Substance: HEPARIN CALCIUM
     Indication: Acute myocardial infarction
     Dosage: 4100 UNIT, ONCE EVERY 11 DAYS
     Route: 058
     Dates: start: 20231105, end: 20231110
  8. METOPROLOL SUCCINATE [Concomitant]
     Active Substance: METOPROLOL SUCCINATE
     Indication: Acute myocardial infarction
     Route: 048
     Dates: start: 20231108, end: 20231116
  9. BENAZEPRIL HYDROCHLORIDE [Concomitant]
     Active Substance: BENAZEPRIL HYDROCHLORIDE
     Indication: Acute myocardial infarction
     Route: 048
     Dates: start: 20231108, end: 20231116
  10. ASPIRIN [Concomitant]
     Active Substance: ASPIRIN
     Indication: Acute myocardial infarction
     Route: 048
     Dates: start: 20231106, end: 20231116

REACTIONS (1)
  - Hepatic function abnormal [Recovered/Resolved]

NARRATIVE: CASE EVENT DATE: 20231111
